FAERS Safety Report 9374602 (Version 1)
Quarter: 2013Q2

REPORT INFORMATION
  Report Type: Spontaneous
  Country: US (occurrence: US)
  Receive Date: 20130628
  Receipt Date: 20130628
  Transmission Date: 20140414
  Serious: Yes (Other)
  Sender: FDA-Public Use
  Company Number: US-UCBSA-079101

PATIENT
  Sex: Male
  Weight: 62.59 kg

DRUGS (6)
  1. VIMPAT [Suspect]
     Indication: CONVULSION
     Dosage: DRUG STRENGTH:50MG
  2. VIMPAT [Suspect]
     Indication: CONVULSION
     Route: 048
     Dates: start: 201301
  3. KEPPRA [Suspect]
     Indication: CONVULSION
     Dosage: 750MG 2 TABLETS TWICE DAILY
     Route: 048
     Dates: start: 20130307
  4. ASPIRIN [Concomitant]
     Indication: HYPERLIPIDAEMIA
     Dosage: 81 MG DAILY
     Route: 048
  5. LIPITOR [Concomitant]
     Indication: HYPERLIPIDAEMIA
     Dosage: 20MG DAILY
     Route: 048
  6. MULTIVITAMINS [Concomitant]
     Dosage: UNKNOWN STRENGTH DAILY
     Route: 048

REACTIONS (1)
  - Convulsion [Not Recovered/Not Resolved]
